FAERS Safety Report 8557233 (Version 2)
Quarter: 2012Q4

REPORT INFORMATION
  Report Type: Spontaneous
  Country: AU (occurrence: None)
  Receive Date: 20120502
  Receipt Date: 20120905
  Transmission Date: 20130627
  Serious: Yes (Hospitalization)
  Sender: FDA-Public Use
  Company Number: 2012-1851

PATIENT
  Sex: Female

DRUGS (2)
  1. DYSPORT [Suspect]
     Indication: DYSTONIA
     Dosage: 1 in 1 cycle
     Route: 051
  2. DYSPORT [Suspect]
     Indication: OFF LABEL USE
     Dosage: 1 in 1 cycle
     Route: 051

REACTIONS (2)
  - Stridor [None]
  - Dysphagia [None]
